FAERS Safety Report 4678966-4 (Version None)
Quarter: 2005Q2

REPORT INFORMATION
  Report Type: 
  Country: None (occurrence: None)
  Receive Date: 20050531
  Receipt Date: 20050524
  Transmission Date: 20051028
  Serious: Yes (Other)
  Sender: FDA-Public Use
  Company Number: A0559907A

PATIENT
  Age: 74 Year
  Sex: Female

DRUGS (6)
  1. LAMICTAL [Suspect]
     Indication: DEPRESSION
     Dosage: SEE IMAGE/ORAL
     Route: 048
     Dates: start: 20050501
  2. PAROXETINE HYDROCHLORIDE [Concomitant]
  3. LIBRIUM [Concomitant]
  4. IPRATROPIUM BROMIDE [Concomitant]
  5. FLUTICASONE PROPIONATE [Concomitant]
  6. SALBUTAMOL SULPHATE [Concomitant]

REACTIONS (4)
  - AGGRESSION [None]
  - ASTHENIA [None]
  - DIZZINESS [None]
  - MANIA [None]
